FAERS Safety Report 5939872-8 (Version None)
Quarter: 2008Q4

REPORT INFORMATION
  Report Type: 
  Country: None (occurrence: None)
  Receive Date: 20081030
  Receipt Date: 20081030
  Transmission Date: 20090506
  Serious: Yes (Other)
  Sender: FDA-Public Use
  Company Number: None

PATIENT
  Age: 72 Year
  Sex: Female
  Weight: 59.4 kg

DRUGS (3)
  1. SORAFENIB [Suspect]
     Indication: BREAST CANCER
     Dosage: SORAFENIB 400MG PO BID
     Route: 048
     Dates: start: 20080708, end: 20080718
  2. ZOMETA [Suspect]
     Indication: BREAST CANCER
     Dosage: ZOMETA 3.5MG Q 28 DAYS
     Dates: start: 20080708
  3. TAMOXIFEN [Concomitant]

REACTIONS (3)
  - HERPES ZOSTER [None]
  - MUCOSAL INFLAMMATION [None]
  - RASH [None]
